FAERS Safety Report 9036396 (Version 1)
Quarter: 2013Q1

REPORT INFORMATION
  Report Type: Report from Study
  Country: US (occurrence: US)
  Receive Date: 20130129
  Receipt Date: 20130129
  Transmission Date: 20140127
  Serious: No
  Sender: FDA-Public Use
  Company Number: US-ABBOTT-12P-163-0899519-00

PATIENT
  Age: 17 Year
  Sex: Female

DRUGS (5)
  1. HUMIRA 40 MG/0.8 ML PEN [Suspect]
     Indication: RHEUMATOID ARTHRITIS
     Dates: start: 201110
  2. METHOTREXATE [Concomitant]
     Indication: RHEUMATOID ARTHRITIS
  3. TRAMADOL [Concomitant]
     Indication: ARTHRALGIA
  4. NAPROSYN [Concomitant]
     Indication: ARTHRALGIA
  5. PREDNISONE [Concomitant]
     Indication: PRODUCT USED FOR UNKNOWN INDICATION
     Dosage: 1-1/2 TABLETS; WEANING OFF

REACTIONS (5)
  - Vaginal discharge [Not Recovered/Not Resolved]
  - Rash papular [Not Recovered/Not Resolved]
  - Urine odour abnormal [Unknown]
  - Renal pain [Unknown]
  - Renal disorder [Unknown]
